FAERS Safety Report 8841706 (Version 1)
Quarter: 2012Q4

REPORT INFORMATION
  Report Type: Spontaneous
  Country: US (occurrence: None)
  Receive Date: 20121011
  Receipt Date: 20121011
  Transmission Date: 20130627
  Serious: Yes (Other)
  Sender: FDA-Public Use
  Company Number: 001379152A

PATIENT
  Age: 16 Year
  Sex: Male
  Weight: 90.72 kg

DRUGS (2)
  1. PROACTIV CLEANSER [Suspect]
     Indication: ACNE
     Route: 023
     Dates: start: 20120921, end: 20120928
  2. PROACTIVE REPAIRING TREATMENT [Suspect]
     Indication: ACNE
     Route: 023
     Dates: start: 20120921, end: 20120928

REACTIONS (3)
  - Loss of consciousness [None]
  - Swelling face [None]
  - Dizziness [None]
